FAERS Safety Report 6681846-6 (Version None)
Quarter: 2010Q2

REPORT INFORMATION
  Report Type: 
  Country: None (occurrence: None)
  Receive Date: 20100414
  Receipt Date: 20100405
  Transmission Date: 20101027
  Serious: Yes (Hospitalization, Disabling, Other)
  Sender: FDA-Public Use
  Company Number: US-ABBOTT-10P-163-0636791-00

PATIENT
  Sex: Female
  Weight: 77.18 kg

DRUGS (14)
  1. HUMIRA [Suspect]
     Indication: RHEUMATOID ARTHRITIS
     Route: 058
     Dates: start: 20070101, end: 20090601
  2. HUMIRA [Suspect]
     Route: 058
     Dates: start: 20091031
  3. LEVOTHYROXINE SODIUM [Concomitant]
     Indication: HYPOTHYROIDISM
     Route: 048
  4. URSODIAL [Concomitant]
     Indication: HEPATIC CIRRHOSIS
     Route: 048
  5. GABAPENTIN [Concomitant]
     Indication: RESTLESS LEGS SYNDROME
     Route: 048
  6. PREDNISOLONE [Concomitant]
     Indication: RHEUMATOID ARTHRITIS
     Route: 048
  7. MULTI-VITAMIN [Concomitant]
     Indication: VITAMIN SUPPLEMENTATION
     Route: 048
  8. LISINOPRIL [Concomitant]
     Indication: HYPERTENSION
     Route: 048
  9. HYDROXYCHLOROQUINE SULFATE [Concomitant]
     Indication: RHEUMATOID ARTHRITIS
     Route: 048
  10. SIMVASTATIN [Concomitant]
     Indication: BLOOD CHOLESTEROL INCREASED
     Route: 048
  11. FOSAMAX [Concomitant]
     Indication: BONE DISORDER
     Route: 048
  12. CALCIUM [Concomitant]
     Indication: BONE DISORDER
     Route: 048
  13. POTASSIUM [Concomitant]
     Indication: MUSCLE SPASMS
  14. TYLENOL W/ CODEINE NO. 3 [Concomitant]
     Indication: PAIN

REACTIONS (10)
  - ANXIETY [None]
  - CEREBROVASCULAR ACCIDENT [None]
  - DEPRESSION [None]
  - FIBROMYALGIA [None]
  - HEMIPLEGIA [None]
  - INJECTION SITE PAIN [None]
  - NERVE INJURY [None]
  - SKIN DISCOLOURATION [None]
  - VISUAL IMPAIRMENT [None]
  - WEIGHT DECREASED [None]
